FAERS Safety Report 6454066-8 (Version None)
Quarter: 2009Q4

REPORT INFORMATION
  Report Type: 
  Country: None (occurrence: None)
  Receive Date: 20091124
  Receipt Date: 20091113
  Transmission Date: 20100525
  Serious: Yes (Life-Threatening)
  Sender: FDA-Public Use
  Company Number: B0604357A

PATIENT
  Age: 22 Year
  Sex: Female
  Weight: 41 kg

DRUGS (1)
  1. RELENZA [Suspect]
     Indication: H1N1 INFLUENZA
     Dosage: 5MG FOUR TIMES PER DAY
     Route: 045
     Dates: start: 20090728

REACTIONS (3)
  - ABORTION SPONTANEOUS [None]
  - DRUG EXPOSURE DURING PREGNANCY [None]
  - NORMAL LABOUR [None]
